FAERS Safety Report 4902192-4 (Version None)
Quarter: 2006Q1

REPORT INFORMATION
  Report Type: 
  Country: None (occurrence: None)
  Receive Date: 20060206
  Receipt Date: 20051130
  Transmission Date: 20060701
  Serious: Yes (Death, Hospitalization)
  Sender: FDA-Public Use
  Company Number: US-MERCK-0512USA00069

PATIENT
  Age: 89 Year
  Sex: Female
  Weight: 100 kg

DRUGS (1)
  1. VIOXX [Suspect]
     Indication: ARTHRITIS
     Route: 048
     Dates: start: 20000101, end: 20031120

REACTIONS (6)
  - CARDIAC FAILURE CONGESTIVE [None]
  - CEREBROVASCULAR ACCIDENT [None]
  - DEATH [None]
  - GASTROINTESTINAL HAEMORRHAGE [None]
  - ISCHAEMIC STROKE [None]
  - OVERDOSE [None]
